FAERS Safety Report 5645949-7 (Version None)
Quarter: 2008Q1

REPORT INFORMATION
  Report Type: 
  Country: None (occurrence: None)
  Receive Date: 20080229
  Receipt Date: 20080218
  Transmission Date: 20080703
  Serious: Yes (Other)
  Sender: FDA-Public Use
  Company Number: JP-PFIZER INC-2008015481

PATIENT
  Age: 57 Year
  Sex: Male

DRUGS (1)
  1. ZITHROMAX [Suspect]
     Indication: GINGIVAL INFECTION
     Dosage: DAILY DOSE:500MG
     Route: 048
     Dates: start: 20080208, end: 20080210

REACTIONS (3)
  - DIARRHOEA [None]
  - EYE PAIN [None]
  - VOMITING [None]
